FAERS Safety Report 9143831 (Version 2)
Quarter: 2013Q2

REPORT INFORMATION
  Report Type: Spontaneous
  Country: GB (occurrence: GB)
  Receive Date: 20130306
  Receipt Date: 20130522
  Transmission Date: 20140414
  Serious: Yes (Other)
  Sender: FDA-Public Use
  Company Number: GB-ROCHE-1197794

PATIENT
  Sex: Female

DRUGS (3)
  1. AVASTIN [Suspect]
     Indication: OVARIAN CANCER
     Route: 065
  2. TAXOL [Concomitant]
  3. CARBOPLATIN [Concomitant]

REACTIONS (3)
  - Arthritis [Unknown]
  - Hypercholesterolaemia [Unknown]
  - Arthralgia [Unknown]
